FAERS Safety Report 4761351-4 (Version None)
Quarter: 2005Q3

REPORT INFORMATION
  Report Type: 
  Country: None (occurrence: None)
  Receive Date: 20050901
  Receipt Date: 20050503
  Transmission Date: 20060218
  Serious: Yes (Life-Threatening)
  Sender: FDA-Public Use
  Company Number: 2005-FR-00261

PATIENT
  Age: 50 Year
  Sex: Male

DRUGS (1)
  1. AMOXICILLIN [Suspect]
     Dosage: 250 MG, ORAL
     Route: 048
     Dates: start: 20050107, end: 20050107

REACTIONS (1)
  - ANAPHYLACTIC REACTION [None]
